FAERS Safety Report 5655028-0 (Version None)
Quarter: 2008Q1

REPORT INFORMATION
  Report Type: 
  Country: None (occurrence: None)
  Receive Date: 20080307
  Receipt Date: 20071026
  Transmission Date: 20080703
  Serious: No
  Sender: FDA-Public Use
  Company Number: A0690089A

PATIENT
  Age: 86 Year
  Sex: Female

DRUGS (4)
  1. REQUIP [Suspect]
     Indication: RESTLESS LEGS SYNDROME
     Route: 048
  2. VICODIN [Concomitant]
  3. FOSAMAX [Concomitant]
  4. PREVACID [Concomitant]

REACTIONS (1)
  - DRUG INEFFECTIVE [None]
